FAERS Safety Report 18937087 (Version 2)
Quarter: 2021Q1

REPORT INFORMATION
  Report Type: Spontaneous
  Country: FR (occurrence: FR)
  Receive Date: 20210224
  Receipt Date: 20210311
  Transmission Date: 20210420
  Serious: Yes (Hospitalization)
  Sender: FDA-Public Use
  Company Number: FR-GUERBET-FR-20210069

PATIENT
  Age: 69 Year
  Sex: Male
  Weight: 83 kg

DRUGS (2)
  1. DOXORUBICIN [Suspect]
     Active Substance: DOXORUBICIN
     Indication: THERAPEUTIC EMBOLISATION
     Route: 065
     Dates: start: 20210120, end: 20210120
  2. LIPIODOL [Suspect]
     Active Substance: ETHIODIZED OIL
     Indication: THERAPEUTIC EMBOLISATION
     Route: 065
     Dates: start: 20210120, end: 20210120

REACTIONS (1)
  - Polychondritis [Not Recovered/Not Resolved]

NARRATIVE: CASE EVENT DATE: 202102
